FAERS Safety Report 5251811-4 (Version None)
Quarter: 2007Q1

REPORT INFORMATION
  Report Type: 
  Country: None (occurrence: None)
  Receive Date: 20070228
  Receipt Date: 20070216
  Transmission Date: 20070707
  Serious: Yes (Other)
  Sender: FDA-Public Use
  Company Number: US-PFIZER INC-2007013313

PATIENT
  Age: 56 Year
  Sex: Male

DRUGS (1)
  1. NEURONTIN [Suspect]

REACTIONS (8)
  - ABNORMAL BEHAVIOUR [None]
  - AGORAPHOBIA [None]
  - CATARACT [None]
  - IMPAIRED WORK ABILITY [None]
  - MANIA [None]
  - PERIORBITAL HAEMATOMA [None]
  - SUICIDAL IDEATION [None]
  - VERTIGO [None]
